FAERS Safety Report 10021405 (Version 2)
Quarter: 2014Q1

REPORT INFORMATION
  Report Type: Spontaneous
  Country: US (occurrence: US)
  Receive Date: 20140319
  Receipt Date: 20140319
  Transmission Date: 20141002
  Serious: Yes (Other)
  Sender: FDA-Public Use
  Company Number: US-PFIZER INC-2004009576

PATIENT
  Age: 54 Year
  Sex: Female
  Weight: 69.4 kg

DRUGS (2)
  1. VFEND [Suspect]
     Indication: FUNGAL INFECTION
     Dosage: 400 MG, 2X/DAY
     Route: 048
     Dates: start: 2003
  2. VFEND [Suspect]
     Dosage: 200 MG, 2X/DAY
     Route: 048
     Dates: start: 20031209, end: 20040213

REACTIONS (4)
  - Intentional overdose [Recovered/Resolved]
  - Porphyria [Recovered/Resolved]
  - Visual impairment [Recovered/Resolved]
  - Drug ineffective [Recovered/Resolved]
